FAERS Safety Report 8927119 (Version 2)
Quarter: 2012Q4

REPORT INFORMATION
  Report Type: 
  Country: JP (occurrence: JP)
  Receive Date: 20121127
  Receipt Date: 20121210
  Transmission Date: 20130627
  Serious: Yes (Life-Threatening, Hospitalization)
  Sender: FDA-Public Use
  Company Number: JP-SANOFI-AVENTIS-2012SA085523

PATIENT
  Age: 81 Year
  Sex: Female
  Weight: 50 kg

DRUGS (5)
  1. PLAVIX [Suspect]
     Indication: CEREBRAL INFARCTION
     Route: 048
     Dates: end: 20110712
  2. ALFAROL [Concomitant]
     Indication: OSTEOPOROSIS
  3. ASPARTATE CALCIUM [Concomitant]
     Indication: OSTEOPOROSIS
  4. THYRADIN [Concomitant]
     Indication: THYROID FUNCTION DECREASED
  5. AMLODIPINE [Concomitant]
     Indication: HYPERTENSION

REACTIONS (5)
  - Varicose vein ruptured [Recovered/Resolved]
  - Haemorrhage [Recovered/Resolved]
  - Haemoglobin decreased [Recovered/Resolved]
  - Shock haemorrhagic [Recovered/Resolved]
  - Loss of consciousness [Recovered/Resolved]
